FAERS Safety Report 11869913 (Version 1)
Quarter: 2015Q4

REPORT INFORMATION
  Report Type: Spontaneous
  Country: FR (occurrence: FR)
  Receive Date: 20151228
  Receipt Date: 20151228
  Transmission Date: 20160305
  Serious: Yes (Hospitalization)
  Sender: FDA-Public Use
  Company Number: FR-VIFOR (INTERNATIONAL) INC.-VIT-2015-03638

PATIENT
  Age: 89 Year
  Sex: Male

DRUGS (12)
  1. PLAVIX [Concomitant]
     Active Substance: CLOPIDOGREL BISULFATE
  2. BACTRIM [Concomitant]
     Active Substance: SULFAMETHOXAZOLE\TRIMETHOPRIM
     Dosage: 150 1/DAY
  3. CRESTOR [Concomitant]
     Active Substance: ROSUVASTATIN CALCIUM
  4. CARDENSIEL [Concomitant]
     Active Substance: BISOPROLOL FUMARATE
  5. DEDROGYL [Concomitant]
     Active Substance: CALCIFEDIOL
     Dosage: 5 DROPS A DAY
  6. UMULINE [Concomitant]
     Active Substance: INSULIN HUMAN
     Dosage: 20 DROPS MORNING + 12 DROPS EVENING
  7. KARDEGIC [Concomitant]
     Active Substance: ASPIRIN LYSINE
  8. ADANCOR [Concomitant]
     Active Substance: NICORANDIL
  9. HUMALOG [Concomitant]
     Active Substance: INSULIN LISPRO
  10. LYRICA [Concomitant]
     Active Substance: PREGABALIN
     Dosage: MORNING 25 MG + EVENING 50 MG
  11. INEXIUM [Concomitant]
     Active Substance: ESOMEPRAZOLE
  12. MIRCERA [Suspect]
     Active Substance: METHOXY POLYETHYLENE GLYCOL-EPOETIN BETA
     Indication: ANAEMIA
     Dosage: 100 MG/0.3ML
     Route: 065
     Dates: start: 20151023

REACTIONS (1)
  - Thrombocytopenia [Recovered/Resolved]

NARRATIVE: CASE EVENT DATE: 20151103
